FAERS Safety Report 6965060-2 (Version None)
Quarter: 2010Q3

REPORT INFORMATION
  Report Type: 
  Country: None (occurrence: None)
  Receive Date: 20100903
  Receipt Date: 20100830
  Transmission Date: 20110219
  Serious: Yes (Hospitalization, Other)
  Sender: FDA-Public Use
  Company Number: CA-BAYER-201028149NA

PATIENT
  Age: 58 Year
  Sex: Male

DRUGS (1)
  1. AVELOX [Suspect]
     Indication: RESPIRATORY DISORDER
     Route: 048
     Dates: start: 20100304, end: 20100315

REACTIONS (7)
  - ABDOMINAL PAIN UPPER [None]
  - ALANINE AMINOTRANSFERASE INCREASED [None]
  - HEPATIC FUNCTION ABNORMAL [None]
  - INFECTION [None]
  - NAUSEA [None]
  - VOMITING [None]
  - YELLOW SKIN [None]
